FAERS Safety Report 10256403 (Version 1)
Quarter: 2014Q2

REPORT INFORMATION
  Report Type: Spontaneous
  Country: US (occurrence: US)
  Receive Date: 20140624
  Receipt Date: 20140624
  Transmission Date: 20141212
  Serious: No
  Sender: FDA-Public Use
  Company Number: US-ZOGENIX, INC.-2012ZX000157

PATIENT
  Sex: Male

DRUGS (3)
  1. SUMAVEL DOSEPRO [Suspect]
     Indication: MIGRAINE
  2. TOPAMAX [Concomitant]
     Indication: PRODUCT USED FOR UNKNOWN INDICATION
  3. LISINOPRIL [Concomitant]
     Indication: PRODUCT USED FOR UNKNOWN INDICATION

REACTIONS (13)
  - Blood testosterone decreased [Unknown]
  - Nausea [Unknown]
  - Drug ineffective [Unknown]
  - Dry mouth [Unknown]
  - Heart rate increased [Unknown]
  - Blood pressure increased [Unknown]
  - Dizziness [Unknown]
  - Vomiting [Unknown]
  - Diarrhoea [Unknown]
  - Vision blurred [Unknown]
  - Visual acuity reduced [Unknown]
  - Anxiety [Unknown]
  - Injection site haemorrhage [Unknown]
